FAERS Safety Report 6002622-3 (Version None)
Quarter: 2008Q4

REPORT INFORMATION
  Report Type: 
  Country: None (occurrence: None)
  Receive Date: 20081212
  Receipt Date: 20081201
  Transmission Date: 20090506
  Serious: Yes (Hospitalization, Other)
  Sender: FDA-Public Use
  Company Number: 2008S1000535

PATIENT
  Age: 49 Year
  Sex: Male
  Weight: 68.0396 kg

DRUGS (8)
  1. SORIATANE [Suspect]
     Indication: PSORIASIS
     Dosage: 25 MG, QD; PO
     Route: 048
     Dates: start: 20080301, end: 20081120
  2. ADVAIR DISKUS 250/50 [Suspect]
     Indication: DRUG USE FOR UNKNOWN INDICATION
     Dosage: 1 DF, BID;
  3. SINGULAIR [Suspect]
     Indication: DRUG USE FOR UNKNOWN INDICATION
     Dosage: 10 MG; QD;
  4. TRICOR [Suspect]
     Indication: DRUG USE FOR UNKNOWN INDICATION
     Dosage: 145 MG;
  5. ASPIRIN [Suspect]
     Indication: ANTIPLATELET THERAPY
     Dosage: 325 MG; QD
     Dates: start: 20080601
  6. LIPITOR [Suspect]
     Indication: DRUG USE FOR UNKNOWN INDICATION
     Dosage: 40 MG; HS;
  7. PLAVIX [Suspect]
     Indication: ANTIPLATELET THERAPY
     Dosage: 75 MG; QD
     Dates: start: 20080601
  8. METOPROLOL [Suspect]
     Indication: DRUG USE FOR UNKNOWN INDICATION
     Dosage: 12.5 MG;

REACTIONS (5)
  - CORONARY ARTERY STENOSIS [None]
  - EPISTAXIS [None]
  - HYPOTENSION [None]
  - MYOCARDIAL INFARCTION [None]
  - WEIGHT DECREASED [None]
